FAERS Safety Report 23175070 (Version 5)
Quarter: 2024Q1

REPORT INFORMATION
  Report Type: Report from Study
  Country: ES (occurrence: ES)
  Receive Date: 20231112
  Receipt Date: 20240312
  Transmission Date: 20240409
  Serious: Yes (Death, Hospitalization, Other)
  Sender: FDA-Public Use
  Company Number: ES-ABBVIE-5488303

PATIENT
  Sex: Male
  Weight: 120 kg

DRUGS (4)
  1. CARBIDOPA\LEVODOPA [Suspect]
     Active Substance: CARBIDOPA\LEVODOPA
     Indication: Parkinson^s disease
     Route: 050
     Dates: start: 20201217, end: 202311
  2. CARBIDOPA\LEVODOPA [Suspect]
     Active Substance: CARBIDOPA\LEVODOPA
     Dosage: DOUBLING THE MORNING DOSE
     Route: 050
     Dates: start: 202311, end: 202311
  3. SINTROM [Concomitant]
     Active Substance: ACENOCOUMAROL
     Indication: Thrombosis
  4. SINEMET [Concomitant]
     Active Substance: CARBIDOPA\LEVODOPA
     Indication: Product used for unknown indication
     Dosage: FREQUENCY TEXT: 2
     Dates: start: 202311

REACTIONS (16)
  - Death [Fatal]
  - Unevaluable event [Unknown]
  - Cerebrovascular accident [Not Recovered/Not Resolved]
  - Fall [Recovering/Resolving]
  - Therapeutic product effect incomplete [Unknown]
  - Loss of consciousness [Recovered/Resolved]
  - Freezing phenomenon [Unknown]
  - Hypophagia [Unknown]
  - Unresponsive to stimuli [Not Recovered/Not Resolved]
  - Effusion [Unknown]
  - Head injury [Unknown]
  - Disorientation [Not Recovered/Not Resolved]
  - Adverse reaction [Unknown]
  - Cerebral haemorrhage [Recovering/Resolving]
  - Haematoma [Recovering/Resolving]
  - Hypernatraemia [Unknown]

NARRATIVE: CASE EVENT DATE: 20230101
